FAERS Safety Report 16146110 (Version 2)
Quarter: 2019Q2

REPORT INFORMATION
  Report Type: Spontaneous
  Country: FR (occurrence: FR)
  Receive Date: 20190402
  Receipt Date: 20190613
  Transmission Date: 20190711
  Serious: Yes (Other)
  Sender: FDA-Public Use
  Company Number: FR-PROVELL PHARMACEUTICALS-2065105

PATIENT
  Age: 50 Year
  Sex: Female
  Weight: 79 kg

DRUGS (1)
  1. EUTHYROX [Suspect]
     Active Substance: LEVOTHYROXINE SODIUM
     Indication: POST PROCEDURAL HYPOTHYROIDISM
     Dates: start: 2017, end: 20171019

REACTIONS (19)
  - Fatigue [None]
  - Suffocation feeling [None]
  - Vertigo [None]
  - Palpitations [None]
  - Oedema peripheral [None]
  - Laryngeal stenosis [None]
  - Thyroid function test abnormal [None]
  - Anxiety [None]
  - Complex regional pain syndrome [None]
  - Phlebitis [None]
  - Overdose [None]
  - Musculoskeletal discomfort [None]
  - Thyroxine free increased [None]
  - Asthenia [None]
  - Sleep disorder [None]
  - Blood thyroid stimulating hormone decreased [None]
  - Insomnia [None]
  - Pain in extremity [None]
  - Tenosynovitis [None]

NARRATIVE: CASE EVENT DATE: 2017
